FAERS Safety Report 22119948 (Version 3)
Quarter: 2023Q2

REPORT INFORMATION
  Report Type: Spontaneous
  Country: DK (occurrence: DK)
  Receive Date: 20230321
  Receipt Date: 20230510
  Transmission Date: 20230722
  Serious: No
  Sender: FDA-Public Use
  Company Number: DK-PFIZER INC-202300108813

PATIENT
  Age: 67 Year
  Sex: Female

DRUGS (2)
  1. ESTRING [Suspect]
     Active Substance: ESTRADIOL
     Indication: Urinary incontinence
     Dosage: UNK
  2. ESTRING [Suspect]
     Active Substance: ESTRADIOL
     Indication: Prophylaxis urinary tract infection

REACTIONS (17)
  - Abdominal discomfort [Unknown]
  - Device physical property issue [Unknown]
  - Reaction to excipient [Unknown]
  - Palpitations [Unknown]
  - Heart rate increased [Unknown]
  - Hypertension [Unknown]
  - Dizziness [Unknown]
  - Asthenia [Unknown]
  - Dysgeusia [Unknown]
  - Paraesthesia oral [Unknown]
  - Headache [Unknown]
  - Thirst [Unknown]
  - Erythema [Unknown]
  - Hot flush [Unknown]
  - Oral discomfort [Unknown]
  - Off label use [Unknown]
  - Drug ineffective for unapproved indication [Unknown]
